FAERS Safety Report 13704450 (Version 1)
Quarter: 2017Q2

REPORT INFORMATION
  Report Type: Spontaneous
  Country: US (occurrence: US)
  Receive Date: 20170629
  Receipt Date: 20170629
  Transmission Date: 20170830
  Serious: Yes (Hospitalization)
  Sender: FDA-Public Use
  Company Number: None

PATIENT
  Age: 57 Year
  Sex: Male
  Weight: 64.8 kg

DRUGS (1)
  1. VIVITROL [Suspect]
     Active Substance: NALTREXONE
     Indication: ALCOHOLISM
     Dosage: ?          OTHER DOSE:MG;OTHER FREQUENCY:EVERY 4 WEEKS;?
     Route: 030
     Dates: start: 20161213, end: 20170612

REACTIONS (3)
  - Respiratory disorder [None]
  - Pyrexia [None]
  - Eosinophil count increased [None]

NARRATIVE: CASE EVENT DATE: 20170612
